FAERS Safety Report 5139405-2 (Version None)
Quarter: 2006Q4

REPORT INFORMATION
  Report Type: 
  Country: None (occurrence: None)
  Receive Date: 20061030
  Receipt Date: 20051122
  Transmission Date: 20070319
  Serious: No
  Sender: FDA-Public Use
  Company Number: US-GLAXOSMITHKLINE-A0583447A

PATIENT
  Age: 44 Year
  Sex: Male

DRUGS (4)
  1. SEREVENT [Suspect]
     Indication: ASTHMA
     Dosage: 2PUFF FOUR TIMES PER DAY
     Route: 055
     Dates: start: 20050501
  2. BECONASE AQ [Concomitant]
  3. FLOVENT [Concomitant]
  4. SYNTHROID [Concomitant]

REACTIONS (2)
  - DRUG INEFFECTIVE [None]
  - WHEEZING [None]
